FAERS Safety Report 7199631-8 (Version None)
Quarter: 2010Q4

REPORT INFORMATION
  Report Type: 
  Country: None (occurrence: None)
  Receive Date: 20101228
  Receipt Date: 20101108
  Transmission Date: 20110411
  Serious: Yes (Other)
  Sender: FDA-Public Use
  Company Number: US-AMGEN-KDL442161

PATIENT

DRUGS (4)
  1. ENBREL [Suspect]
     Indication: RHEUMATOID ARTHRITIS
     Dosage: 50 MG, QWK
     Route: 058
     Dates: start: 20100803
  2. ENBREL [Suspect]
     Dates: start: 20101007
  3. PLAQUENIL [Concomitant]
     Dates: start: 20060101
  4. METHOTREXATE [Concomitant]
     Dates: start: 20070101

REACTIONS (5)
  - DENTURE WEARER [None]
  - DRUG INEFFECTIVE [None]
  - HYPOAESTHESIA [None]
  - RHEUMATOID ARTHRITIS [None]
  - STOMATITIS [None]
